FAERS Safety Report 17508752 (Version 7)
Quarter: 2020Q4

REPORT INFORMATION
  Report Type: Spontaneous
  Country: US (occurrence: US)
  Receive Date: 20200306
  Receipt Date: 20201103
  Transmission Date: 20210113
  Serious: Yes (Hospitalization, Other)
  Sender: FDA-Public Use
  Company Number: US-LEXICON PHARMACEUTICALS, INC-20-1606-00170

PATIENT
  Age: 73 Year
  Sex: Female

DRUGS (6)
  1. XERMELO [Suspect]
     Active Substance: TELOTRISTAT ETHYL
  2. XERMELO [Suspect]
     Active Substance: TELOTRISTAT ETHYL
     Dosage: ALTERNATING 1 PILL ONE DAY AND 2 PILLS THE NEXT
  3. XERMELO [Suspect]
     Active Substance: TELOTRISTAT ETHYL
     Dosage: 2 TBL AS NEEDED PER DAY
  4. CONTRAST MEDIA [Suspect]
     Active Substance: UNSPECIFIED INGREDIENT
  5. XERMELO [Suspect]
     Active Substance: TELOTRISTAT ETHYL
     Indication: CARCINOID SYNDROME
     Dates: start: 20190314
  6. XERMELO [Suspect]
     Active Substance: TELOTRISTAT ETHYL

REACTIONS (10)
  - Off label use [Not Recovered/Not Resolved]
  - Abdominal pain upper [Unknown]
  - Cancer surgery [Unknown]
  - Surgery [Unknown]
  - Intestinal obstruction [Unknown]
  - Constipation [Unknown]
  - Diarrhoea [Recovered/Resolved]
  - Diarrhoea [Not Recovered/Not Resolved]
  - Hospitalisation [Unknown]
  - Contrast media reaction [Unknown]

NARRATIVE: CASE EVENT DATE: 202006
